FAERS Safety Report 6336634-7 (Version None)
Quarter: 2009Q3

REPORT INFORMATION
  Report Type: 
  Country: None (occurrence: None)
  Receive Date: 20090831
  Receipt Date: 20090831
  Transmission Date: 20100115
  Serious: Yes (Death)
  Sender: FDA-Public Use
  Company Number: None

PATIENT
  Age: 58 Year
  Sex: Female
  Weight: 73.9363 kg

DRUGS (6)
  1. ENBREL [Suspect]
     Indication: PSORIATIC ARTHROPATHY
     Dosage: 50 MG/ML 1 PER WEEK OTHER
     Route: 050
     Dates: start: 20071116, end: 20080118
  2. LIPITOR [Concomitant]
  3. TOZORAC [Concomitant]
  4. ENALAPRIL MALEATE [Concomitant]
  5. AZITHORMYC [Concomitant]
  6. HYDROCORD/APAP [Concomitant]

REACTIONS (3)
  - PNEUMONIA NECROTISING [None]
  - SEPSIS [None]
  - SEPTIC SHOCK [None]
